APPROVED DRUG PRODUCT: REZLIDHIA
Active Ingredient: OLUTASIDENIB
Strength: 150MG
Dosage Form/Route: CAPSULE;ORAL
Application: N215814 | Product #001
Applicant: RIGEL PHARMACEUTICALS INC
Approved: Dec 1, 2022 | RLD: Yes | RS: Yes | Type: RX

PATENTS:
Patent 11497743 | Expires: May 16, 2039
Patent 11376246 | Expires: May 16, 2039
Patent 11013734 | Expires: May 16, 2039
Patent 11013733 | Expires: May 16, 2039
Patent 9834539 | Expires: Sep 18, 2035
Patent 11738018 | Expires: Jul 17, 2039
Patent 12275715 | Expires: Sep 18, 2035
Patent 10532047 | Expires: May 16, 2039
Patent 12053463 | Expires: May 16, 2039
Patent 10959994 | Expires: May 16, 2039
Patent 10414752 | Expires: Sep 18, 2035
Patent 10550098 | Expires: Sep 18, 2035
Patent 11723905 | Expires: Nov 12, 2039
Patent 11498913 | Expires: Sep 18, 2035

EXCLUSIVITY:
Code: NCE | Date: Dec 1, 2027
Code: ODE-413 | Date: Dec 1, 2029